FAERS Safety Report 8131971-8 (Version None)
Quarter: 2012Q1

REPORT INFORMATION
  Report Type: 
  Country: None (occurrence: None)
  Receive Date: 20120207
  Receipt Date: 20120123
  Transmission Date: 20120608
  Serious: Yes (Life-Threatening, Disabling)
  Sender: FDA-Public Use
  Company Number: 2012SGN00027

PATIENT
  Age: 75 Year
  Sex: Male
  Weight: 82 kg

DRUGS (5)
  1. BRENTUXIMAB VEDOTIN (BRENTUXIMAB VEDOTIN) INJECTION [Suspect]
     Indication: MYCOSIS FUNGOIDES
     Dosage: 1.8 MG/KG, Q21D, INTRAVENOUS
     Route: 042
     Dates: start: 20110906, end: 20111220
  2. GABAPENTIN [Concomitant]
  3. LEVOFLOXACIN [Concomitant]
  4. TRIAMCINOLONE (TRIAMCINOLONE ACETONIDE) [Concomitant]
  5. PREDNISOLONE ACETATE [Concomitant]

REACTIONS (10)
  - GAIT DISTURBANCE [None]
  - SEPSIS [None]
  - CARDIAC DISORDER [None]
  - LUNG DISORDER [None]
  - PNEUMONIA [None]
  - ACTIVITIES OF DAILY LIVING IMPAIRED [None]
  - LYMPHOMA [None]
  - PERIPHERAL SENSORY NEUROPATHY [None]
  - DEMYELINATING POLYNEUROPATHY [None]
  - IMPAIRED SELF-CARE [None]
